FAERS Safety Report 23897778 (Version 3)
Quarter: 2024Q2

REPORT INFORMATION
  Report Type: Report from Study
  Country: US (occurrence: US)
  Receive Date: 20240524
  Receipt Date: 20240612
  Transmission Date: 20240715
  Serious: No
  Sender: FDA-Public Use
  Company Number: US-AstraZeneca-CH-00629859A

PATIENT
  Age: 35 Year
  Sex: Female
  Weight: 43.18 kg

DRUGS (1)
  1. STRENSIQ [Suspect]
     Active Substance: ASFOTASE ALFA
     Indication: Hypophosphatasia
     Dosage: 86 MILLIGRAM, TIW
     Route: 058
     Dates: start: 20240517

REACTIONS (4)
  - Injection site discomfort [Recovered/Resolved]
  - Injection site pain [Unknown]
  - Injection site bruising [Unknown]
  - Contusion [Unknown]

NARRATIVE: CASE EVENT DATE: 20240517
